FAERS Safety Report 16899207 (Version 2)
Quarter: 2020Q4

REPORT INFORMATION
  Report Type: Spontaneous
  Country: US (occurrence: US)
  Receive Date: 20191009
  Receipt Date: 20201229
  Transmission Date: 20210113
  Serious: No
  Sender: FDA-Public Use
  Company Number: US-PFIZER INC-2017283880

PATIENT
  Age: 70 Year
  Sex: Female
  Weight: 61 kg

DRUGS (3)
  1. LYRICA [Suspect]
     Active Substance: PREGABALIN
     Indication: NEUROPATHY PERIPHERAL
     Dosage: 100 MG, 3X/DAY
     Route: 048
  2. LYRICA [Suspect]
     Active Substance: PREGABALIN
     Indication: POLYNEUROPATHY
     Dosage: UNK, ALTERNATE DAY (EVERY OTHER DAY)
  3. LYRICA [Suspect]
     Active Substance: PREGABALIN
     Indication: CHRONIC KIDNEY DISEASE
     Dosage: 150 MG, 2X/DAY
     Route: 048

REACTIONS (2)
  - Intentional product misuse [Unknown]
  - Weight decreased [Unknown]
